FAERS Safety Report 17849884 (Version 2)
Quarter: 2020Q2

REPORT INFORMATION
  Report Type: Spontaneous
  Country: DE (occurrence: DE)
  Receive Date: 20200602
  Receipt Date: 20200608
  Transmission Date: 20200714
  Serious: Yes (Other)
  Sender: FDA-Public Use
  Company Number: DE-TEVA-2020-DE-1242709

PATIENT
  Age: 69 Year
  Sex: Male
  Weight: 80 kg

DRUGS (1)
  1. IBUPROFEN 600 MG [Suspect]
     Active Substance: IBUPROFEN
     Indication: TENDONITIS
     Dosage: 1800 MILLIGRAM DAILY;
     Route: 048
     Dates: start: 20200412, end: 20200418

REACTIONS (2)
  - Blood pressure increased [Recovered/Resolved]
  - Weight increased [Recovered/Resolved]

NARRATIVE: CASE EVENT DATE: 20200417
